FAERS Safety Report 5997853-2 (Version None)
Quarter: 2008Q4

REPORT INFORMATION
  Report Type: 
  Country: None (occurrence: None)
  Receive Date: 20081212
  Receipt Date: 20081124
  Transmission Date: 20090506
  Serious: No
  Sender: FDA-Public Use
  Company Number: US-ABBOTT-08P-163-0489627-00

PATIENT
  Sex: Female
  Weight: 81.72 kg

DRUGS (1)
  1. HUMIRA [Suspect]
     Indication: RHEUMATOID ARTHRITIS
     Dates: start: 20070901

REACTIONS (5)
  - DIARRHOEA [None]
  - GASTROENTERITIS VIRAL [None]
  - INFLUENZA [None]
  - NASOPHARYNGITIS [None]
  - VIRAL INFECTION [None]
